FAERS Safety Report 22759162 (Version 3)
Quarter: 2023Q4

REPORT INFORMATION
  Report Type: Report from Study
  Country: US (occurrence: US)
  Receive Date: 20230728
  Receipt Date: 20231102
  Transmission Date: 20240109
  Serious: Yes (Hospitalization)
  Sender: FDA-Public Use
  Company Number: US-SAREPTA THERAPEUTICS INC.-SRP2023-003457

PATIENT
  Age: 7 Year
  Sex: Male
  Weight: 33.4 kg

DRUGS (14)
  1. DELANDISTROGENE MOXEPARVOVEC [Suspect]
     Active Substance: DELANDISTROGENE MOXEPARVOVEC
     Indication: Duchenne muscular dystrophy
     Dosage: 350 MILLILITER, SINGLE
     Route: 042
     Dates: start: 20230508, end: 20230508
  2. ZYRTEC [Concomitant]
     Active Substance: CETIRIZINE HYDROCHLORIDE
     Indication: Hypersensitivity
     Dosage: 5 MILLIGRAM, QD
     Route: 048
     Dates: start: 20191003
  3. METHYLPHENIDATE [Concomitant]
     Active Substance: METHYLPHENIDATE
     Indication: Attention deficit hyperactivity disorder
     Dosage: 1 MILLIGRAM, QD
     Route: 048
     Dates: start: 20221105
  4. VITAMIN D3 [Concomitant]
     Active Substance: CHOLECALCIFEROL
     Indication: Nutritional supplementation
     Dosage: 5 MILLIGRAM, QD
     Route: 048
     Dates: start: 20210106
  5. CEFDINIR [Concomitant]
     Active Substance: CEFDINIR
     Indication: Pharyngitis streptococcal
     Dosage: 245 MILLIGRAM, BID
     Route: 048
     Dates: start: 20230324, end: 20230417
  6. ZOFRAN [Concomitant]
     Active Substance: ONDANSETRON HYDROCHLORIDE
     Indication: Nausea
     Dosage: 4 MILLIGRAM, PRN
     Route: 048
     Dates: start: 20230515
  7. ZOFRAN [Concomitant]
     Active Substance: ONDANSETRON HYDROCHLORIDE
     Indication: Vomiting
  8. PEPCID [Concomitant]
     Active Substance: FAMOTIDINE
     Indication: Nausea
     Dosage: 16 MILLIGRAM, PRN
     Route: 048
     Dates: start: 20230522
  9. PEPCID [Concomitant]
     Active Substance: FAMOTIDINE
     Indication: Vomiting
  10. ZESTRIL [Concomitant]
     Active Substance: LISINOPRIL
     Indication: Cardiovascular event prophylaxis
     Dosage: 2.5 MILLIGRAM, QD
     Route: 048
     Dates: start: 20230504
  11. FLONASE [Concomitant]
     Active Substance: FLUTICASONE PROPIONATE
     Indication: Hypersensitivity
     Dosage: 1 SQUIZE EACH NOSTRIL, PRN
     Route: 045
     Dates: start: 20191003
  12. SINGULAIR [Concomitant]
     Active Substance: MONTELUKAST SODIUM
     Indication: Hypersensitivity
     Dosage: 4 MILLIGRAM, QD
     Route: 048
     Dates: start: 20191003
  13. ORAPRED ODT [Concomitant]
     Active Substance: PREDNISOLONE SODIUM PHOSPHATE
     Indication: Duchenne muscular dystrophy
     Dosage: 90 MILLIGRAM, TWICE WEEKLY
     Route: 048
     Dates: start: 20200603
  14. QUILLIVANT XR [Concomitant]
     Active Substance: METHYLPHENIDATE HYDROCHLORIDE
     Indication: Product used for unknown indication
     Dosage: 60 MILLILITER, (5MG/ML),  QD
     Route: 048

REACTIONS (2)
  - Immune-mediated myositis [Recovered/Resolved with Sequelae]
  - Troponin I increased [Recovered/Resolved]

NARRATIVE: CASE EVENT DATE: 20230603
